FAERS Safety Report 23054442 (Version 1)
Quarter: 2023Q4

REPORT INFORMATION
  Report Type: Spontaneous
  Country: BR (occurrence: None)
  Receive Date: 20231011
  Receipt Date: 20231011
  Transmission Date: 20240110
  Serious: Yes (Other)
  Sender: FDA-Public Use
  Company Number: 2023A225990

PATIENT
  Age: 65 Year
  Sex: Female

DRUGS (2)
  1. OLAPARIB [Suspect]
     Active Substance: OLAPARIB
     Indication: Lung adenocarcinoma
     Route: 048
     Dates: start: 202011
  2. OLAPARIB [Suspect]
     Active Substance: OLAPARIB
     Indication: Lung adenocarcinoma
     Route: 048

REACTIONS (3)
  - Drug resistance [Unknown]
  - Gene mutation [Unknown]
  - Fatigue [Unknown]
